FAERS Safety Report 7773567-3 (Version None)
Quarter: 2011Q3

REPORT INFORMATION
  Report Type: 
  Country: None (occurrence: None)
  Receive Date: 20110923
  Receipt Date: 20110915
  Transmission Date: 20111222
  Serious: Yes (Other)
  Sender: FDA-Public Use
  Company Number: NL-AMGEN-NLDSP2011048482

PATIENT
  Age: 66 Year
  Sex: Female

DRUGS (6)
  1. ACETAMINOPHEN [Concomitant]
     Dosage: UNK
  2. ENBREL [Suspect]
     Indication: RHEUMATOID ARTHRITIS
     Dosage: 50 MG, WEEKLY
     Dates: start: 20100914, end: 20110101
  3. ENBREL [Suspect]
     Dosage: 50 MG, WEEKLY
     Dates: start: 20110919
  4. ARTHROTEC [Concomitant]
     Dosage: UNK
  5. ENALAPRIL MALEATE [Concomitant]
     Dosage: UNK
  6. HYDROCHLOROTHIAZIDE [Concomitant]
     Dosage: UNK

REACTIONS (3)
  - UTERINE POLYP [None]
  - MALAISE [None]
  - KNEE OPERATION [None]
